FAERS Safety Report 5205369-6 (Version None)
Quarter: 2007Q1

REPORT INFORMATION
  Report Type: 
  Country: None (occurrence: None)
  Receive Date: 20070110
  Receipt Date: 20070105
  Transmission Date: 20070707
  Serious: Yes (Hospitalization)
  Sender: FDA-Public Use
  Company Number: US-MERCK-0701USA00825

PATIENT
  Age: 47 Year
  Sex: Male

DRUGS (1)
  1. VYTORIN [Suspect]
     Indication: BLOOD CHOLESTEROL
     Route: 048
     Dates: start: 20061208, end: 20061217

REACTIONS (3)
  - CHEST PAIN [None]
  - OEDEMA [None]
  - PHARYNGEAL OEDEMA [None]
